FAERS Safety Report 13833340 (Version 1)
Quarter: 2017Q3

REPORT INFORMATION
  Report Type: Spontaneous
  Country: US (occurrence: US)
  Receive Date: 20170803
  Receipt Date: 20170803
  Transmission Date: 20171127
  Serious: Yes (Other)
  Sender: FDA-Public Use
  Company Number: US-ASTRAZENECA-2017SE77923

PATIENT
  Age: 895 Month
  Sex: Female

DRUGS (56)
  1. FASLODEX [Suspect]
     Active Substance: FULVESTRANT
     Indication: BREAST CANCER STAGE IV
     Route: 030
     Dates: start: 20170116, end: 20170616
  2. LISINOPRIL. [Suspect]
     Active Substance: LISINOPRIL
     Route: 048
  3. DEXAMETHASONE. [Concomitant]
     Active Substance: DEXAMETHASONE
     Dosage: 20 MG EVERY DAY CONTINUOUS OVER 15 MINUTES FOR ONE DAY IN D5W 50 ML(1)
     Route: 042
     Dates: start: 20081104, end: 20090129
  4. METHOCARBAMOL. [Concomitant]
     Active Substance: METHOCARBAMOL
     Dosage: 750 MG, TAKE AS DIRECTED
     Route: 048
     Dates: start: 20101027, end: 20170127
  5. ADVAIR DISKUS [Concomitant]
     Active Substance: FLUTICASONE PROPIONATE\SALMETEROL XINAFOATE
     Dosage: 1 AEROSOL POWDER, BREATH ACTIVATED INHALATION TWO TIMES A DAY
     Dates: end: 20161011
  6. ONDANSETRON [Concomitant]
     Active Substance: ONDANSETRON
     Dosage: 32 MG EVERY CONTINUOUS OVER 15 MINUTE FOR ONE DAY IN D5W 50 ML (1)
     Route: 042
     Dates: start: 20081104, end: 20090129
  7. ZOMETA [Suspect]
     Active Substance: ZOLEDRONIC ACID
     Indication: BREAST CANCER STAGE IV
     Dosage: 4 RNG EVERY FOUR WEEKS CONTINUOUS OVER 20 MINUTES FOR TWO DOSES IN NS 100 ML (1)
     Route: 042
     Dates: start: 20090518, end: 20110602
  8. CALCIUM WITH VITAMIN D3 [Concomitant]
     Active Substance: CALCIUM CARBONATE\CHOLECALCIFEROL
  9. DAILY MULTIVITAMIN [Concomitant]
     Active Substance: VITAMINS
     Route: 048
  10. KAON-CL [Concomitant]
     Route: 048
     Dates: start: 20081203, end: 20090502
  11. CALTRATE 600 PLUS-VITD [Concomitant]
     Route: 048
     Dates: end: 20170127
  12. FASLODEX [Suspect]
     Active Substance: FULVESTRANT
     Indication: BREAST CANCER STAGE IV
     Route: 030
     Dates: start: 20130911
  13. ALEVE [Concomitant]
     Active Substance: NAPROXEN SODIUM
     Route: 048
  14. HYDROCHLOROTHIAZIDE. [Concomitant]
     Active Substance: HYDROCHLOROTHIAZIDE
     Route: 048
  15. LASIX [Concomitant]
     Active Substance: FUROSEMIDE
     Route: 048
     Dates: start: 20081210, end: 20090108
  16. LORTAB [Concomitant]
     Active Substance: ACETAMINOPHEN\HYDROCODONE BITARTRATE
     Dosage: 5-500 MG TABLET ORAL TAKE AS DIRECTED
     Route: 048
     Dates: start: 20110707, end: 20170127
  17. PROCHLORPERAZINE MALEATE. [Concomitant]
     Active Substance: PROCHLORPERAZINE MALEATE
     Dosage: 1 (1 0 MG) TABLET FOUR TIMES A DAY AS REQUIRED.
     Route: 048
     Dates: start: 20170412, end: 20170519
  18. HYDROCODONE-ACETAMINOPHEN [Concomitant]
     Active Substance: ACETAMINOPHEN\HYDROCODONE
     Dosage: ONE TABLET EVERY FOUR HOURS AS REQUIRED.
     Route: 048
     Dates: end: 20100106
  19. NORMAL SALINE FLUSH [Concomitant]
     Active Substance: SODIUM CHLORIDE
     Dosage: 20 ML (OF 0.9 PERCENT) INJECTION DAILY FOR ONE DAY
     Dates: start: 20080923, end: 20091210
  20. ASPIRIN. [Concomitant]
     Active Substance: ASPIRIN
     Route: 048
  21. POTASSIUM CHLORIDE. [Concomitant]
     Active Substance: POTASSIUM CHLORIDE
     Route: 048
  22. DOCETAXEL. [Concomitant]
     Active Substance: DOCETAXEL
     Dosage: 132 MG (AT 75 MG/M2) INTRAVENOUS EVERY DAY CONTINUOUS OVER ONE HOUR FOR ONE DAY IN NS 250 ML (3)
     Route: 042
     Dates: start: 20081104, end: 20090129
  23. LEVAQUIN [Concomitant]
     Active Substance: LEVOFLOXACIN
     Route: 048
     Dates: start: 20081111, end: 20081217
  24. RANITIDINE. [Concomitant]
     Active Substance: RANITIDINE
     Dosage: 50 MG DAILY CONTINUOUS OVER 15 SECONDS FOR DAY IN NS 50 ML (2)
     Route: 042
     Dates: start: 20081104, end: 20090129
  25. LORATADINE. [Concomitant]
     Active Substance: LORATADINE
     Dosage: 1 (10 MG) DAILY AS REQUIRED.
     Route: 048
     Dates: end: 20090910
  26. IRON [Concomitant]
     Active Substance: IRON
     Route: 048
     Dates: end: 20161011
  27. INFLUENZA VIRUS VACCINE [Concomitant]
     Active Substance: INFLUENZA VIRUS VACCINE
     Dosage: 0.5ML ONCE/SINGLE ADMINISTRATION
     Route: 030
     Dates: start: 20131106, end: 20131106
  28. IBRANCE [Suspect]
     Active Substance: PALBOCICLIB
     Indication: BREAST CANCER STAGE IV
     Route: 048
     Dates: start: 20170116
  29. ZOMETA [Suspect]
     Active Substance: ZOLEDRONIC ACID
     Indication: BREAST CANCER STAGE IV
     Dosage: 4 MG DAILY CONTINUOUS OVER 15 MINUTES FOR ONE DAY IN NS 100 ML(1)
     Route: 042
     Dates: start: 20110630, end: 20110630
  30. CLEOCIN [Concomitant]
     Active Substance: CLINDAMYCIN PHOSPHATE
     Route: 048
     Dates: start: 20110707
  31. TAMOXIFEN CITRATE. [Concomitant]
     Active Substance: TAMOXIFEN CITRATE
     Indication: BREAST CANCER STAGE IV
     Route: 048
     Dates: start: 20150722, end: 20170519
  32. ZITHROMAX [Concomitant]
     Active Substance: AZITHROMYCIN DIHYDRATE
     Dosage: PACK TAKE AS DIRECTED
     Route: 048
     Dates: start: 20090219
  33. PREDNISONE. [Concomitant]
     Active Substance: PREDNISONE
     Route: 048
     Dates: end: 20161011
  34. ARIMIDEX [Suspect]
     Active Substance: ANASTROZOLE
     Indication: BREAST CANCER STAGE IV
     Route: 048
     Dates: start: 20090320
  35. FASLODEX [Suspect]
     Active Substance: FULVESTRANT
     Indication: BREAST CANCER STAGE IV
     Route: 030
     Dates: end: 201606
  36. POTASSIUM CHLORIDE. [Concomitant]
     Active Substance: POTASSIUM CHLORIDE
     Dosage: 40 MEQ ONCE CONTINUOUS OVER FOUR HOURS IN NS 400 ML (3)
     Route: 042
     Dates: start: 20091204, end: 20091204
  37. PROAIR HFA [Concomitant]
     Active Substance: ALBUTEROL SULFATE
     Dosage: 2 (1 08 (90 BASE) MCG/ACT)AEROSOL, SOLUTION INHALATION FOUR TIMES A DAY
  38. VITAMIN D3 [Concomitant]
     Active Substance: CHOLECALCIFEROL
     Dosage: 2 (1000 UNITS) DAILY
     Route: 048
     Dates: end: 20170127
  39. HYDROCODONE-ACETAMINOPHEN [Concomitant]
     Active Substance: ACETAMINOPHEN\HYDROCODONE
     Dosage: 1 (5-325 MG) TABLET EVERY SIX HOURS AS REQUIRED.
     Route: 048
     Dates: end: 20161011
  40. ARIMIDEX [Suspect]
     Active Substance: ANASTROZOLE
     Indication: BREAST CANCER STAGE IV
     Route: 048
     Dates: start: 20131009
  41. FLUMIST [Suspect]
     Active Substance: INFLUENZA A VIRUS A/CALIFORNIA/7/2009 (H1N1) LIVE(ATTENUATED) ANTIGEN\INFLUENZA A VIRUS A/PERTH/16/2009 (H3N2) LIVE(ATTENUATED) ANTIGEN\INFLUENZA B VIRUS B/BRISBANE/60/2008 LIVE(ATTENUATED) ANTIGEN
     Dosage: 0.5ML ONCE/SINGLE ADMINISTRATION
     Route: 030
     Dates: start: 20151027, end: 20151027
  42. CATHFLO ACTIVASE [Concomitant]
     Active Substance: ALTEPLASE
     Dosage: 2 MG ONCE IN STERILIZED WATER 2 ML(1)
     Route: 042
     Dates: start: 20090910, end: 20090910
  43. EXEMESTANE. [Concomitant]
     Active Substance: EXEMESTANE
     Indication: BREAST CANCER STAGE IV
     Route: 048
     Dates: start: 20120522
  44. OXYCODONE HYDROCHLORIDE. [Concomitant]
     Active Substance: OXYCODONE HYDROCHLORIDE
     Dosage: ONE (5 MG) TABLET EVERY SIX HOURS AS REQUIRED
     Route: 048
     Dates: start: 20081029
  45. TRAZODONE HYDROCHLORIDE. [Concomitant]
     Active Substance: TRAZODONE HYDROCHLORIDE
     Dosage: 1 (150 MG) TABLET AT BEDTIME
     Route: 048
     Dates: end: 20080923
  46. HEPARIN LOCK FLUSH [Concomitant]
     Active Substance: HEPARIN SODIUM
     Dosage: 10 ML (OF 100 UNITS/ML) ONCE
     Route: 042
     Dates: start: 20080923, end: 20091210
  47. ARIMIDEX [Suspect]
     Active Substance: ANASTROZOLE
     Indication: BREAST CANCER STAGE IV
     Route: 048
     Dates: start: 20100819
  48. FASLODEX [Suspect]
     Active Substance: FULVESTRANT
     Indication: BREAST CANCER STAGE IV
     Route: 030
     Dates: start: 201507
  49. NEUPOGEN [Concomitant]
     Active Substance: FILGRASTIM
     Route: 058
     Dates: start: 20081111, end: 20090202
  50. VITAMIN D3 [Concomitant]
     Active Substance: CHOLECALCIFEROL
     Route: 048
  51. COMPAZINE [Concomitant]
     Active Substance: PROCHLORPERAZINE MALEATE
     Dosage: EVERY SIX HOURS AS REQUIRED.
     Route: 048
     Dates: start: 20081104
  52. DIPHENHYDRAMINE. [Concomitant]
     Active Substance: DIPHENHYDRAMINE
     Dosage: 25 MG DAILY CONTINUOUS OVER 15 MINUTES FOR ONE DAY IN D5W 50ML(1)
     Route: 042
     Dates: start: 20081104, end: 20090129
  53. METOCLOPRAMIDE HYDROCHLORIDE. [Concomitant]
     Active Substance: METOCLOPRAMIDE HYDROCHLORIDE
     Route: 048
     Dates: start: 20170309, end: 20170519
  54. PAROXETINE HCL [Concomitant]
     Active Substance: PAROXETINE HYDROCHLORIDE
     Route: 048
     Dates: start: 20110505
  55. CITRACAL PLUS [Concomitant]
     Active Substance: CALCIUM\MAGNESIUM\VITAMIN D\ZINC
     Route: 048
     Dates: end: 20170127
  56. COUMADIN [Concomitant]
     Active Substance: WARFARIN SODIUM
     Route: 048
     Dates: end: 20090810

REACTIONS (9)
  - Cardiac failure congestive [Unknown]
  - Depression [Unknown]
  - Nausea [Recovered/Resolved]
  - Drug hypersensitivity [Unknown]
  - Cough [Recovered/Resolved]
  - Tooth disorder [Unknown]
  - Hypertension [Unknown]
  - Vomiting [Recovered/Resolved]
  - Osteoporosis [Unknown]

NARRATIVE: CASE EVENT DATE: 201703
